FAERS Safety Report 15855554 (Version 1)
Quarter: 2019Q1

REPORT INFORMATION
  Report Type: Spontaneous
  Country: US (occurrence: US)
  Receive Date: 20190122
  Receipt Date: 20190122
  Transmission Date: 20190417
  Serious: No
  Sender: FDA-Public Use
  Company Number: US-009507513-1812USA012586

PATIENT
  Age: 81 Year
  Sex: Male

DRUGS (4)
  1. CLOFAZIMINE [Concomitant]
     Active Substance: CLOFAZIMINE
     Indication: MYCOBACTERIAL INFECTION
     Dosage: 50 MILLIGRAM,DAILY
     Route: 048
  2. ACETYLCYSTEINE. [Concomitant]
     Active Substance: ACETYLCYSTEINE
     Indication: MYCOBACTERIAL INFECTION
     Dosage: UNK
     Route: 048
  3. SIVEXTRO [Suspect]
     Active Substance: TEDIZOLID PHOSPHATE
     Indication: MYCOBACTERIAL INFECTION
     Dosage: UNK
     Route: 048
  4. AZITHROMYCIN ANHYDROUS. [Concomitant]
     Active Substance: AZITHROMYCIN ANHYDROUS
     Indication: MYCOBACTERIAL INFECTION
     Dosage: 500 MILLIGRAM, DAILY
     Route: 048

REACTIONS (1)
  - Product use in unapproved indication [Unknown]
